FAERS Safety Report 23040865 (Version 1)
Quarter: 2023Q4

REPORT INFORMATION
  Report Type: Spontaneous
  Country: US (occurrence: US)
  Receive Date: 20231006
  Receipt Date: 20231006
  Transmission Date: 20240110
  Serious: Yes (Hospitalization)
  Sender: FDA-Public Use
  Company Number: US-PPDUS-2023ST003191

PATIENT
  Age: 53 Year
  Sex: Female

DRUGS (1)
  1. ORSERDU [Suspect]
     Active Substance: ELACESTRANT
     Indication: Product used for unknown indication
     Dosage: 258 MG, ONCE A DAY
     Route: 048
     Dates: start: 20230519

REACTIONS (7)
  - Pleural effusion [Not Recovered/Not Resolved]
  - Epinephrine abnormal [Unknown]
  - Thyroid hormones increased [Recovering/Resolving]
  - Product use issue [Unknown]
  - Palpitations [Not Recovered/Not Resolved]
  - Tension [Not Recovered/Not Resolved]
  - Product dose omission issue [Unknown]
